FAERS Safety Report 15548279 (Version 1)
Quarter: 2018Q4

REPORT INFORMATION
  Report Type: Spontaneous
  Country: NL (occurrence: NL)
  Receive Date: 20181024
  Receipt Date: 20181024
  Transmission Date: 20190205
  Serious: Yes (Hospitalization)
  Sender: FDA-Public Use
  Company Number: NL-BIOGEN-2018BI00648434

PATIENT
  Age: 56 Year
  Sex: Female

DRUGS (3)
  1. TEMAZEPAM 20MG [Concomitant]
     Indication: PRODUCT USED FOR UNKNOWN INDICATION
     Dosage: ZO NODIG
     Route: 065
  2. LORAZEPAM 0.5MG [Concomitant]
     Active Substance: LORAZEPAM
     Indication: PRODUCT USED FOR UNKNOWN INDICATION
     Dosage: 3 DD 1
     Route: 065
  3. FAMPYRA [Suspect]
     Active Substance: DALFAMPRIDINE
     Indication: RELAPSING-REMITTING MULTIPLE SCLEROSIS
     Dosage: 2 X PER DAG 1 STUK
     Route: 048
     Dates: start: 20180702, end: 20180801

REACTIONS (1)
  - Mania [Unknown]

NARRATIVE: CASE EVENT DATE: 20180730
